FAERS Safety Report 4299734-1 (Version None)
Quarter: 2004Q1

REPORT INFORMATION
  Report Type: 
  Country: None (occurrence: None)
  Receive Date: 20040126
  Receipt Date: 20031112
  Transmission Date: 20041129
  Serious: No
  Sender: FDA-Public Use
  Company Number: USA031152353

PATIENT
  Age: 51 Year
  Sex: Female
  Weight: 57 kg

DRUGS (5)
  1. STRATTERA [Suspect]
     Indication: ATTENTION DEFICIT/HYPERACTIVITY DISORDER
     Dosage: 40 MG/DAY
     Dates: start: 20031107
  2. ALDACTONE [Concomitant]
  3. CALCIUM [Concomitant]
  4. GLUCOSAMINE, CHONDROITIN, MSM [Concomitant]
  5. MULTIVITAMIN [Concomitant]

REACTIONS (1)
  - ELEVATED MOOD [None]
